FAERS Safety Report 8160026-1 (Version None)
Quarter: 2012Q1

REPORT INFORMATION
  Report Type: 
  Country: None (occurrence: None)
  Receive Date: 20120223
  Receipt Date: 20120208
  Transmission Date: 20120608
  Serious: Yes (Hospitalization, Disabling)
  Sender: FDA-Public Use
  Company Number: HK-GLAXOSMITHKLINE-B0781574A

PATIENT
  Sex: Male
  Weight: 80 kg

DRUGS (2)
  1. ZANAMIVIR [Suspect]
     Indication: H1N1 INFLUENZA
     Route: 042
     Dates: start: 20090822, end: 20090825
  2. IMMUNE GLOBULIN NOS [Suspect]
     Indication: INFLUENZA
     Route: 042
     Dates: start: 20090820, end: 20090822

REACTIONS (1)
  - RENAL FAILURE ACUTE [None]
